FAERS Safety Report 8252320-0 (Version None)
Quarter: 2012Q2

REPORT INFORMATION
  Report Type: 
  Country: None (occurrence: None)
  Receive Date: 20120402
  Receipt Date: 20110505
  Transmission Date: 20120825
  Serious: No
  Sender: FDA-Public Use
  Company Number: US-ABBOTT-11P-163-0804541-00

PATIENT
  Sex: Male
  Weight: 77.272 kg

DRUGS (2)
  1. ACETYLSALICYLIC ACID [Concomitant]
     Indication: PROPHYLAXIS
     Dosage: DAILY DOSE: 81 MILLIGRAM(S)
     Route: 065
  2. TESTOSTERONE [Suspect]
     Indication: BLOOD TESTOSTERONE DECREASED
     Dosage: DAILY DOSE:  UNKNOWN, AS USED: 5 GRAM (S)
     Route: 062
     Dates: start: 20110420

REACTIONS (2)
  - NIPPLE DISORDER [None]
  - LIBIDO INCREASED [None]
